FAERS Safety Report 5001035-0 (Version None)
Quarter: 2006Q2

REPORT INFORMATION
  Report Type: 
  Country: None (occurrence: None)
  Receive Date: 20060512
  Receipt Date: 20060317
  Transmission Date: 20061013
  Serious: Yes (Other)
  Sender: FDA-Public Use
  Company Number: AU-GLAXOSMITHKLINE-B0417140A

PATIENT
  Sex: Female
  Weight: 50 kg

DRUGS (3)
  1. SERETIDE [Suspect]
     Indication: SEASONAL ALLERGY
     Route: 055
  2. ALUSTAL [Concomitant]
     Dates: start: 20040101
  3. TILADE [Concomitant]
     Dosage: 2PUFF TWICE PER DAY
     Route: 055

REACTIONS (1)
  - CATARACT [None]
